FAERS Safety Report 25082089 (Version 1)
Quarter: 2025Q1

REPORT INFORMATION
  Report Type: Spontaneous
  Country: US (occurrence: US)
  Receive Date: 20250317
  Receipt Date: 20250317
  Transmission Date: 20250409
  Serious: No
  Sender: ROCHE
  Company Number: US-ROCHE-10000228237

PATIENT
  Age: 34 Year

DRUGS (1)
  1. KADCYLA [Suspect]
     Active Substance: ADO-TRASTUZUMAB EMTANSINE
     Indication: Breast cancer
     Route: 065

REACTIONS (7)
  - Pneumonitis [Unknown]
  - Neuropathy peripheral [Unknown]
  - Fatigue [Unknown]
  - Nausea [Unknown]
  - Anger [Unknown]
  - Fear [Unknown]
  - Radiation pneumonitis [Unknown]
